FAERS Safety Report 4421138-9 (Version None)
Quarter: 2004Q3

REPORT INFORMATION
  Report Type: 
  Country: None (occurrence: None)
  Receive Date: 20040707
  Receipt Date: 20040323
  Transmission Date: 20050211
  Serious: Yes (Hospitalization)
  Sender: FDA-Public Use
  Company Number: 362748

PATIENT
  Age: 36 Year
  Sex: Male

DRUGS (9)
  1. FUZEON [Suspect]
     Indication: HIV INFECTION
     Dosage: 90 MG 2 PER DAY SUBCUTANEOUS
     Route: 058
     Dates: start: 20030815, end: 20040315
  2. VASOTEC (ENALAPRILUM) [Concomitant]
  3. NORVIR [Concomitant]
  4. CELEXA [Concomitant]
  5. UNKNOWN DRUG (GENERIC COMPONENT(S) UNKNOWN) [Concomitant]
  6. DAPSONE [Concomitant]
  7. TRICOR [Concomitant]
  8. UNKNOWN DRUG (GENERIC COMPONENT(S) UNKNOWN) [Concomitant]
  9. VIREAD (TEMOFOVIR) [Concomitant]

REACTIONS (3)
  - ANGIONEUROTIC OEDEMA [None]
  - HYPERSENSITIVITY [None]
  - SKIN DISCOMFORT [None]
